FAERS Safety Report 6007853-4 (Version None)
Quarter: 2008Q4

REPORT INFORMATION
  Report Type: 
  Country: None (occurrence: None)
  Receive Date: 20081217
  Receipt Date: 20080703
  Transmission Date: 20090506
  Serious: No
  Sender: FDA-Public Use
  Company Number: US-ASTRAZENECA-2008UW13385

PATIENT
  Age: 69 Year
  Sex: Female
  Weight: 66.2 kg

DRUGS (7)
  1. CRESTOR [Suspect]
     Indication: BLOOD CHOLESTEROL INCREASED
     Route: 048
     Dates: start: 20080626
  2. SPIRONOLACTONE [Concomitant]
  3. METFORMIN HCL [Concomitant]
  4. GLYBURIDE [Concomitant]
  5. PREDNISONE TAB [Concomitant]
  6. INSULIN [Concomitant]
  7. PRESTIQ [Concomitant]

REACTIONS (3)
  - DIZZINESS [None]
  - MUSCLE SPASMS [None]
  - NAUSEA [None]
